FAERS Safety Report 10747601 (Version 1)
Quarter: 2015Q1

REPORT INFORMATION
  Report Type: Spontaneous
  Country: GB (occurrence: GB)
  Receive Date: 20150129
  Receipt Date: 20150129
  Transmission Date: 20150721
  Serious: Yes (Disabling, Other)
  Sender: FDA-Public Use
  Company Number: GB-CIPLA LTD.-2015GB00657

PATIENT

DRUGS (7)
  1. LAMOTRIGINE. [Suspect]
     Active Substance: LAMOTRIGINE
     Dosage: 100 UNK, UNK
     Dates: start: 20130621
  2. TOPAMAX [Suspect]
     Active Substance: TOPIRAMATE
     Indication: EPILEPSY
     Dosage: 125 MG, UNK
     Dates: start: 20110211, end: 201402
  3. TOPAMAX [Suspect]
     Active Substance: TOPIRAMATE
     Indication: ASTROCYTOMA
  4. LAMOTRIGINE. [Suspect]
     Active Substance: LAMOTRIGINE
     Dosage: 125 MG, UNK
     Route: 048
     Dates: start: 20110211, end: 201402
  5. VALPROIC ACID. [Suspect]
     Active Substance: VALPROIC ACID
     Dosage: 100 MG, QD
     Route: 048
     Dates: start: 20130621
  6. EPILIM [Suspect]
     Active Substance: VALPROATE SODIUM
     Indication: EPILEPSY
     Dosage: 900 MG, UNK
     Route: 048
     Dates: start: 20120525
  7. VALPROIC ACID. [Suspect]
     Active Substance: VALPROIC ACID
     Indication: EPILEPSY
     Dosage: 900 MG, UNK
     Dates: start: 20120525

REACTIONS (3)
  - Visual field defect [Unknown]
  - Maculopathy [Not Recovered/Not Resolved]
  - Optic atrophy [Not Recovered/Not Resolved]

NARRATIVE: CASE EVENT DATE: 201312
